FAERS Safety Report 6649071-2 (Version None)
Quarter: 2010Q1

REPORT INFORMATION
  Report Type: 
  Country: None (occurrence: None)
  Receive Date: 20100324
  Receipt Date: 20090706
  Transmission Date: 20100710
  Serious: Yes (Hospitalization)
  Sender: FDA-Public Use
  Company Number: US-SANOFI-AVENTIS-F01200900559

PATIENT
  Age: 73 Year
  Sex: Female
  Weight: 60 kg

DRUGS (6)
  1. OXALIPLATIN [Suspect]
     Indication: GASTRIC CANCER
     Dosage: UNIT DOSE: 85 MG/M2
     Route: 041
     Dates: start: 20090605, end: 20090605
  2. DOCETAXEL [Suspect]
     Dosage: UNIT DOSE: 50 MG/M2
     Route: 041
     Dates: start: 20090605, end: 20090605
  3. FLUOROURACIL [Suspect]
     Dosage: UNIT DOSE: 2400 MG/M2
     Route: 042
     Dates: start: 20090605, end: 20090605
  4. HYDROCODONE BITARTRATE + ACETAMINOPHEN [Concomitant]
     Indication: PAIN
     Dosage: DOSE TEXT: 5/500 MG
     Route: 048
     Dates: start: 20090318
  5. KYTRIL [Concomitant]
     Dosage: UNIT DOSE: 1000 MCG
     Route: 042
     Dates: start: 20090318
  6. DECADRON [Concomitant]
     Indication: PREMEDICATION
     Dosage: UNIT DOSE: 8 MG
     Route: 048
     Dates: start: 20090317

REACTIONS (1)
  - GASTROINTESTINAL PERFORATION [None]
